FAERS Safety Report 23194966 (Version 3)
Quarter: 2024Q3

REPORT INFORMATION
  Report Type: Report from Study
  Country: GB (occurrence: GB)
  Receive Date: 20231117
  Receipt Date: 20240809
  Transmission Date: 20241017
  Serious: No
  Sender: ROCHE
  Company Number: GB-ROCHE-3457788

PATIENT
  Age: 48 Year
  Sex: Female
  Weight: 76.2 kg

DRUGS (12)
  1. OCRELIZUMAB [Suspect]
     Active Substance: OCRELIZUMAB
     Indication: Relapsing-remitting multiple sclerosis
     Route: 042
     Dates: start: 20191126, end: 20191126
  2. OCRELIZUMAB [Suspect]
     Active Substance: OCRELIZUMAB
     Route: 042
     Dates: start: 20220706, end: 20220706
  3. OCRELIZUMAB [Suspect]
     Active Substance: OCRELIZUMAB
     Route: 042
     Dates: start: 20200729, end: 20200729
  4. OCRELIZUMAB [Suspect]
     Active Substance: OCRELIZUMAB
     Route: 042
     Dates: start: 20191210, end: 20191210
  5. OCRELIZUMAB [Suspect]
     Active Substance: OCRELIZUMAB
     Route: 042
     Dates: start: 20220106, end: 20220106
  6. OCRELIZUMAB [Suspect]
     Active Substance: OCRELIZUMAB
     Route: 042
     Dates: start: 20230706, end: 20230706
  7. OCRELIZUMAB [Suspect]
     Active Substance: OCRELIZUMAB
     Route: 042
     Dates: start: 20230105, end: 20230105
  8. OCRELIZUMAB [Suspect]
     Active Substance: OCRELIZUMAB
     Route: 042
     Dates: start: 20210204, end: 20210204
  9. OCRELIZUMAB [Suspect]
     Active Substance: OCRELIZUMAB
     Route: 042
     Dates: start: 20240103, end: 20240103
  10. METHYLPREDNISOLONE [Concomitant]
     Active Substance: METHYLPREDNISOLONE
     Dosage: FREQUENCY TEXT:ONCE BEFORE INFUSION
     Route: 042
     Dates: start: 20220706, end: 20220706
  11. CHLORPHENIRAMINE MALEATE [Concomitant]
     Active Substance: CHLORPHENIRAMINE MALEATE
     Dosage: FREQUENCY TEXT:ONCE BEFORE INFUSION
     Route: 042
     Dates: start: 20220706, end: 20220706
  12. ACETAMINOPHEN [Concomitant]
     Active Substance: ACETAMINOPHEN
     Dosage: FREQUENCY TEXT:ONCE BEFORE INFUSION
     Route: 042
     Dates: start: 20220706, end: 20220706

REACTIONS (1)
  - COVID-19 [Recovered/Resolved]

NARRATIVE: CASE EVENT DATE: 20220310
